FAERS Safety Report 5488816-4 (Version None)
Quarter: 2007Q4

REPORT INFORMATION
  Report Type: 
  Country: None (occurrence: None)
  Receive Date: 20071016
  Receipt Date: 20071001
  Transmission Date: 20080405
  Serious: Yes (Life-Threatening)
  Sender: FDA-Public Use
  Company Number: 2007US002449

PATIENT
  Age: 38 Year
  Sex: Male

DRUGS (1)
  1. AMBISOME [Suspect]
     Indication: MUCORMYCOSIS
     Dosage: 700 MG, UID/QD, IV NOS
     Route: 042
     Dates: start: 20070619, end: 20070709

REACTIONS (1)
  - RENAL FAILURE ACUTE [None]
